FAERS Safety Report 6399804-8 (Version None)
Quarter: 2009Q4

REPORT INFORMATION
  Report Type: 
  Country: None (occurrence: None)
  Receive Date: 20091014
  Receipt Date: 20091008
  Transmission Date: 20100525
  Serious: Yes (Hospitalization)
  Sender: FDA-Public Use
  Company Number: FR-ABBOTT-08P-056-0437676-01

PATIENT
  Sex: Male
  Weight: 74 kg

DRUGS (9)
  1. HUMIRA [Suspect]
     Indication: RHEUMATOID ARTHRITIS
     Route: 058
     Dates: start: 20040426, end: 20050708
  2. HUMIRA [Suspect]
     Route: 058
     Dates: start: 20050901, end: 20050908
  3. NOPRAL [Concomitant]
     Indication: ABDOMINAL PAIN UPPER
  4. NOPRAL [Concomitant]
     Indication: PROPHYLAXIS
  5. CORTANCYL [Concomitant]
     Indication: RHEUMATOID ARTHRITIS
     Dates: start: 20050201
  6. PYOSTACINE [Concomitant]
     Indication: POSTOPERATIVE WOUND INFECTION
     Dates: start: 20050801
  7. FUMAFER [Concomitant]
     Indication: ANAEMIA
     Dates: start: 20050518
  8. ACETAMINOPHEN [Concomitant]
     Indication: PAIN
     Dates: start: 20050519
  9. DIAMICRON [Concomitant]
     Indication: DIABETES MELLITUS
     Dates: start: 20030101

REACTIONS (1)
  - JOINT ABSCESS [None]
